FAERS Safety Report 14610090 (Version 1)
Quarter: 2018Q1

REPORT INFORMATION
  Report Type: Spontaneous
  Country: US (occurrence: US)
  Receive Date: 20180307
  Receipt Date: 20180307
  Transmission Date: 20180509
  Serious: No
  Sender: FDA-Public Use
  Company Number: None

PATIENT
  Age: 25 Year
  Sex: Female
  Weight: 72.57 kg

DRUGS (1)
  1. GUANFACINE. [Suspect]
     Active Substance: GUANFACINE

REACTIONS (4)
  - Skin discolouration [None]
  - Contusion [None]
  - Drug hypersensitivity [None]
  - Therapy change [None]

NARRATIVE: CASE EVENT DATE: 20170215
